FAERS Safety Report 16782390 (Version 1)
Quarter: 2019Q3

REPORT INFORMATION
  Report Type: Report from Study
  Country: CO (occurrence: CO)
  Receive Date: 20190906
  Receipt Date: 20190906
  Transmission Date: 20191005
  Serious: Yes (Other)
  Sender: FDA-Public Use
  Company Number: CO-TAKEDA-2018TUS001226

PATIENT
  Age: 55 Year
  Sex: Female
  Weight: 49 kg

DRUGS (7)
  1. PARACETAMOL [Concomitant]
     Active Substance: ACETAMINOPHEN
     Dosage: UNK UNK, QD
  2. ESOMEPRAZOL                        /01479301/ [Concomitant]
     Active Substance: ESOMEPRAZOLE
     Dosage: 20 MILLIGRAM, QD
  3. VEDOLIZUMAB [Suspect]
     Active Substance: VEDOLIZUMAB
     Indication: COLITIS ULCERATIVE
     Dosage: 300 MILLIGRAM
     Route: 042
     Dates: start: 20171122
  4. AZATHIOPRINE. [Concomitant]
     Active Substance: AZATHIOPRINE
     Dosage: 50 MILLIGRAM, QD
  5. CALCITRIOL. [Concomitant]
     Active Substance: CALCITRIOL
     Dosage: 25 MILLIGRAM, QD
  6. THIAMIN [Concomitant]
     Active Substance: THIAMINE
     Dosage: UNK UNK, QD
  7. ALENDRONATE SODIUM. [Concomitant]
     Active Substance: ALENDRONATE SODIUM
     Dosage: 70 MILLIGRAM

REACTIONS (8)
  - Nasal congestion [Not Recovered/Not Resolved]
  - Large intestine polyp [Recovered/Resolved]
  - Anosmia [Not Recovered/Not Resolved]
  - Feeling hot [Not Recovered/Not Resolved]
  - Haematochezia [Not Recovered/Not Resolved]
  - Productive cough [Not Recovered/Not Resolved]
  - Asthenia [Not Recovered/Not Resolved]
  - Influenza [Not Recovered/Not Resolved]

NARRATIVE: CASE EVENT DATE: 20180227
